FAERS Safety Report 8645352 (Version 6)
Quarter: 2013Q1

REPORT INFORMATION
  Report Type: Spontaneous
  Country: PL (occurrence: PL)
  Receive Date: 20120702
  Receipt Date: 20130313
  Transmission Date: 20140127
  Serious: Yes (Other)
  Sender: FDA-Public Use
  Company Number: PL-PFIZER INC-2012144394

PATIENT
  Age: 59 Year
  Sex: Male
  Weight: 60 kg

DRUGS (5)
  1. CARDURA XL [Suspect]
     Indication: BENIGN PROSTATIC HYPERPLASIA
     Dosage: 4 MG, ONE TABLET ONCE DAILY
     Route: 048
     Dates: start: 20120419, end: 20120709
  2. EUTHYROX [Concomitant]
     Dosage: 100 UNK, 1X/DAY IN THE MORNING
     Dates: start: 20040310
  3. TULIP [Concomitant]
     Dosage: UNK, 1X/DAY
     Dates: start: 20080610
  4. ACLOTIN [Concomitant]
     Dosage: 1 DF, 2X/DAY
     Dates: start: 19970927
  5. PROTEVASC [Concomitant]
     Dosage: 1 DF, 2X/DAY
     Dates: start: 20090505

REACTIONS (8)
  - Oliguria [Unknown]
  - Breast fibrosis [Unknown]
  - Gynaecomastia [Recovering/Resolving]
  - Blood pressure decreased [Recovered/Resolved]
  - Heart rate decreased [Unknown]
  - Libido decreased [Recovering/Resolving]
  - Weight increased [Recovered/Resolved]
  - Oropharyngeal pain [Recovered/Resolved]
